FAERS Safety Report 11262060 (Version 3)
Quarter: 2015Q3

REPORT INFORMATION
  Report Type: Spontaneous
  Country: JP (occurrence: JP)
  Receive Date: 20150710
  Receipt Date: 20150820
  Transmission Date: 20151125
  Serious: Yes (Other)
  Sender: FDA-Public Use
  Company Number: PHJP2015JP011382

PATIENT
  Age: 15 Year
  Sex: Male
  Weight: 68 kg

DRUGS (11)
  1. NEORAL [Suspect]
     Active Substance: CYCLOSPORINE
     Indication: NEPHROTIC SYNDROME
     Dosage: 50 MG, BID
     Route: 048
     Dates: start: 20130411, end: 20130413
  2. FEROTYM [Concomitant]
     Active Substance: FERROUS CITRATE\SODIUM
     Indication: IRON DEFICIENCY ANAEMIA
     Dosage: 100 MG, BID
     Route: 048
     Dates: start: 20130107, end: 20140117
  3. FOSPHENYTOIN [Concomitant]
     Active Substance: FOSPHENYTOIN\FOSPHENYTOIN SODIUM
     Indication: CONVULSION PROPHYLAXIS
     Route: 041
     Dates: start: 20130413
  4. RITUXIMAB [Concomitant]
     Active Substance: RITUXIMAB
     Indication: LYMPHOMA
     Dosage: 500 MG, UNK
     Route: 065
  5. NEORAL [Suspect]
     Active Substance: CYCLOSPORINE
     Dosage: 100 MG, QD
     Route: 048
  6. RITUXIMAB [Concomitant]
     Active Substance: RITUXIMAB
     Indication: NEPHROTIC SYNDROME
  7. MEVALOTIN [Concomitant]
     Active Substance: PRAVASTATIN SODIUM
     Indication: NEPHROTIC SYNDROME
     Dosage: 10 MG, BID
     Route: 048
     Dates: end: 20140804
  8. PREDONINE [Suspect]
     Active Substance: PREDNISOLONE\PREDNISOLONE ACETATE\PREDNISOLONE SODIUM SUCCINATE
     Dosage: 5 MG, TID
     Route: 048
     Dates: start: 20130413
  9. PREDONINE [Suspect]
     Active Substance: PREDNISOLONE\PREDNISOLONE ACETATE\PREDNISOLONE SODIUM SUCCINATE
     Indication: NEPHROTIC SYNDROME
     Dosage: 20 MG, BID
     Route: 048
     Dates: start: 20130116, end: 20130412
  10. NEORAL [Suspect]
     Active Substance: CYCLOSPORINE
     Dosage: 50 MG, QD
     Route: 048
     Dates: start: 20130520
  11. THYRADIN-S [Concomitant]
     Active Substance: LEVOTHYROXINE
     Indication: NEPHROTIC SYNDROME
     Dosage: 50 UG, QD
     Route: 048
     Dates: start: 20130401, end: 20131009

REACTIONS (4)
  - Acute kidney injury [Unknown]
  - Posterior reversible encephalopathy syndrome [Unknown]
  - Generalised tonic-clonic seizure [Recovered/Resolved]
  - Headache [Unknown]

NARRATIVE: CASE EVENT DATE: 20130413
